FAERS Safety Report 6045191-4 (Version None)
Quarter: 2009Q1

REPORT INFORMATION
  Report Type: 
  Country: None (occurrence: None)
  Receive Date: 20090116
  Receipt Date: 20090116
  Transmission Date: 20090719
  Serious: Yes (Hospitalization)
  Sender: FDA-Public Use
  Company Number: None

PATIENT
  Age: 59 Year
  Sex: Male
  Weight: 71.6683 kg

DRUGS (12)
  1. CITUXIMAB [Suspect]
     Indication: PANCREATIC CARCINOMA
     Dosage: 925MG EVERY 2 WEEKS IV
     Route: 042
     Dates: start: 20090106
  2. XELODA [Suspect]
     Indication: PANCREATIC CARCINOMA
     Dosage: 1500MG BID ON XRT DAYS PO
     Route: 048
     Dates: start: 20090107
  3. NEXIUM [Concomitant]
  4. MORPHINE SULFATE [Concomitant]
  5. FENTANYL TRANSDERMAL SYSTEM [Concomitant]
  6. LISINOPRIL [Concomitant]
  7. NOVALOG INSULIN [Concomitant]
  8. LANTUS [Concomitant]
  9. ODANSETRON [Concomitant]
  10. REMERON [Concomitant]
  11. ATIVAN [Concomitant]
  12. PROCHLORPERAZINE [Concomitant]

REACTIONS (2)
  - ABDOMINAL HERNIA OBSTRUCTIVE [None]
  - MASS [None]
